FAERS Safety Report 4452854-0 (Version None)
Quarter: 2004Q3

REPORT INFORMATION
  Report Type: 
  Country: None (occurrence: None)
  Receive Date: 20040916
  Receipt Date: 20040909
  Transmission Date: 20050211
  Serious: Yes (Hospitalization)
  Sender: FDA-Public Use
  Company Number: KII-2001-0007455

PATIENT
  Sex: Female

DRUGS (2)
  1. OXYCONTIN [Suspect]
     Indication: PAIN
     Dosage: 80 MG, QID,
  2. CORTICOSTEROIDS () [Suspect]
     Dosage: ORAL
     Route: 048

REACTIONS (1)
  - DIABETIC KETOACIDOSIS [None]
